FAERS Safety Report 7972789-6 (Version None)
Quarter: 2011Q4

REPORT INFORMATION
  Report Type: 
  Country: None (occurrence: None)
  Receive Date: 20111213
  Receipt Date: 20111209
  Transmission Date: 20120403
  Serious: No
  Sender: FDA-Public Use
  Company Number: US-PFIZER INC-2011301190

PATIENT
  Sex: Female
  Weight: 81.63 kg

DRUGS (6)
  1. FISH OIL [Concomitant]
     Indication: CARDIOVASCULAR EVENT PROPHYLAXIS
     Dosage: 1000 MG, UNK
  2. ZOCOR [Suspect]
     Indication: BLOOD CHOLESTEROL ABNORMAL
  3. ATENOLOL [Concomitant]
     Indication: HYPERTENSION
     Dosage: 100 MG, UNK
  4. ACETYLSALICYLIC ACID [Concomitant]
     Indication: CARDIOVASCULAR EVENT PROPHYLAXIS
     Dosage: 81 MG, UNK
  5. ZOCOR [Suspect]
     Indication: CARDIOVASCULAR EVENT PROPHYLAXIS
     Dosage: 20 MG, UNK
  6. AROMASIN [Suspect]
     Indication: NEOPLASM PROPHYLAXIS
     Dosage: 25 MG, DAILY
     Route: 048
     Dates: start: 20110601, end: 20111101

REACTIONS (4)
  - ORAL HERPES [None]
  - LIP BLISTER [None]
  - ALOPECIA [None]
  - ABDOMINAL PAIN [None]
